FAERS Safety Report 22193626 (Version 2)
Quarter: 2023Q2

REPORT INFORMATION
  Report Type: Spontaneous
  Country: US (occurrence: US)
  Receive Date: 20230410
  Receipt Date: 20230417
  Transmission Date: 20230722
  Serious: No
  Sender: FDA-Public Use
  Company Number: US-INSUD PHARMA-2304US02102

PATIENT

DRUGS (2)
  1. SLYND [Suspect]
     Active Substance: DROSPIRENONE
     Indication: Contraception
     Dosage: 4 MILLIGRAMS ONCE DAILY
     Route: 048
     Dates: start: 202302, end: 202304
  2. MACROBID [Suspect]
     Active Substance: NITROFURANTOIN\NITROFURANTOIN MONOHYDRATE
     Indication: Urinary tract infection
     Dosage: TOOK TWO DOSES WEDNESDAY AND THURSDAY
     Route: 065
     Dates: start: 20230329, end: 20230330

REACTIONS (8)
  - Vulvovaginal mycotic infection [Unknown]
  - Nausea [Unknown]
  - Hypophagia [Unknown]
  - Weight decreased [Unknown]
  - Intermenstrual bleeding [Unknown]
  - Abdominal pain [Unknown]
  - Faeces soft [Unknown]
  - Back pain [Unknown]

NARRATIVE: CASE EVENT DATE: 20230301
